FAERS Safety Report 9448417 (Version 3)
Quarter: 2013Q3

REPORT INFORMATION
  Report Type: Spontaneous
  Country: IT (occurrence: IT)
  Receive Date: 20130808
  Receipt Date: 20130830
  Transmission Date: 20140515
  Serious: Yes (Hospitalization)
  Sender: FDA-Public Use
  Company Number: PHHY2013IT083273

PATIENT
  Age: 58 Year
  Sex: Female

DRUGS (2)
  1. TEGRETOL [Suspect]
     Indication: MYOPATHY
     Dosage: 200 MG, DAILY
     Route: 048
     Dates: start: 20130410, end: 20130630
  2. ZIMOX [Suspect]
     Indication: TOOTH ABSCESS
     Dosage: 2 G, DAILY
     Route: 048
     Dates: start: 20130527, end: 20130531

REACTIONS (6)
  - Drug reaction with eosinophilia and systemic symptoms [Recovered/Resolved]
  - Thrombocytosis [Recovered/Resolved]
  - Eyelid oedema [Recovered/Resolved]
  - Liver function test abnormal [Recovered/Resolved]
  - Pyrexia [Recovered/Resolved]
  - Rash maculo-papular [Recovered/Resolved]
